FAERS Safety Report 8557320-9 (Version None)
Quarter: 2012Q3

REPORT INFORMATION
  Report Type: 
  Country: None (occurrence: None)
  Receive Date: 20120801
  Receipt Date: 20120716
  Transmission Date: 20120928
  Serious: Yes (Hospitalization, Other)
  Sender: FDA-Public Use
  Company Number: US-ROCHE-391310

PATIENT
  Sex: Female

DRUGS (7)
  1. WELLBUTRIN [Concomitant]
     Indication: PRODUCT USED FOR UNKNOWN INDICATION
     Route: 065
  2. PEGASYS [Suspect]
     Route: 058
  3. TELAPREVIR [Suspect]
     Indication: HEPATITIS C
  4. RIBAVIRIN [Suspect]
     Indication: HEPATITIS C
     Route: 048
  5. PROZAC [Concomitant]
     Indication: DEPRESSION
     Route: 065
  6. PEGASYS [Suspect]
     Indication: HEPATITIS C
     Dosage: DOSAGE REPORTED AS ONE INJECTION PER WEEK.
     Route: 065
     Dates: start: 20041030, end: 20050109
  7. COPEGUS [Suspect]
     Indication: HEPATITIS C
     Route: 048
     Dates: start: 20041030, end: 20050109

REACTIONS (44)
  - TOOTH EXTRACTION [None]
  - PRURITUS [None]
  - APPETITE DISORDER [None]
  - DECREASED APPETITE [None]
  - LYMPHADENOPATHY [None]
  - SWELLING [None]
  - LUNG DISORDER [None]
  - CONSTIPATION [None]
  - ORAL PAIN [None]
  - ANXIETY [None]
  - INJECTION SITE HAEMATOMA [None]
  - BLOOD PRESSURE INCREASED [None]
  - MALAISE [None]
  - RASH [None]
  - INSOMNIA [None]
  - MENORRHAGIA [None]
  - SKIN WARM [None]
  - HEADACHE [None]
  - MUSCULOSKELETAL PAIN [None]
  - THYROID DISORDER [None]
  - HALLUCINATION, AUDITORY [None]
  - STOMATITIS [None]
  - BLISTER [None]
  - BONE DISORDER [None]
  - NAUSEA [None]
  - FEELING ABNORMAL [None]
  - RASH ERYTHEMATOUS [None]
  - GINGIVAL PAIN [None]
  - DYSPNOEA [None]
  - FATIGUE [None]
  - PAIN [None]
  - BACK PAIN [None]
  - DEPRESSION [None]
  - DYSURIA [None]
  - PSYCHOTIC DISORDER [None]
  - THROMBOSIS [None]
  - CRYING [None]
  - ABDOMINAL PAIN [None]
  - HALLUCINATION [None]
  - MUSCLE SPASMS [None]
  - CHEST PAIN [None]
  - MEMORY IMPAIRMENT [None]
  - POLLAKIURIA [None]
  - VISION BLURRED [None]
